FAERS Safety Report 6568688-7 (Version None)
Quarter: 2010Q1

REPORT INFORMATION
  Report Type: 
  Country: None (occurrence: None)
  Receive Date: 20100203
  Receipt Date: 20100126
  Transmission Date: 20100710
  Serious: Yes (Life-Threatening, Hospitalization)
  Sender: FDA-Public Use
  Company Number: GXKR2010IT01215

PATIENT
  Sex: Male

DRUGS (4)
  1. OXALIPLATINO EBEWE (NGX) [Suspect]
     Indication: COLON CANCER
     Dosage: 200 MG/DAY
     Dates: start: 20091201, end: 20091222
  2. DEXAMETHASONE [Concomitant]
     Dosage: 4 MG/ML
     Route: 065
     Dates: start: 20091201, end: 20091222
  3. RANIDIL [Concomitant]
     Dosage: 50 MG/ML
     Route: 065
     Dates: start: 20091201, end: 20091222
  4. TRIMETON [Concomitant]
     Dosage: 10 MG/ML
     Route: 065
     Dates: start: 20091201, end: 20091222

REACTIONS (2)
  - CARDIO-RESPIRATORY ARREST [None]
  - CHEST PAIN [None]
